FAERS Safety Report 21155645 (Version 1)
Quarter: 2022Q3

REPORT INFORMATION
  Report Type: Spontaneous
  Country: IT (occurrence: IT)
  Receive Date: 20220801
  Receipt Date: 20220801
  Transmission Date: 20221026
  Serious: Yes (Other)
  Sender: FDA-Public Use
  Company Number: None

PATIENT
  Age: 74 Year
  Sex: Male

DRUGS (2)
  1. ENTECAVIR [Suspect]
     Active Substance: ENTECAVIR
     Indication: Hepatitis B reactivation
     Dosage: 0.5 MG, Q48H
     Dates: start: 202004, end: 202101
  2. ENTECAVIR [Suspect]
     Active Substance: ENTECAVIR
     Indication: Hepatitis B reactivation
     Dosage: 0.5 MG, QD
     Dates: start: 201907, end: 202004

REACTIONS (3)
  - Drug resistance [Unknown]
  - Renal impairment [Unknown]
  - Drug ineffective [Unknown]
